FAERS Safety Report 12091515 (Version 3)
Quarter: 2016Q1

REPORT INFORMATION
  Report Type: Report from Study
  Country: US (occurrence: US)
  Receive Date: 20160218
  Receipt Date: 20160317
  Transmission Date: 20160526
  Serious: Yes (Other)
  Sender: FDA-Public Use
  Company Number: US-GILEAD-2016-0198722

PATIENT
  Age: 78 Year
  Sex: Female
  Weight: 76.19 kg

DRUGS (23)
  1. FLEXERIL                           /00821801/ [Concomitant]
     Active Substance: CEFIXIME
  2. SPIRONOLACTONE. [Concomitant]
     Active Substance: SPIRONOLACTONE
  3. ADCIRCA [Suspect]
     Active Substance: TADALAFIL
     Indication: PRODUCT USED FOR UNKNOWN INDICATION
     Dosage: 2 DF, QD
     Route: 065
  4. FLUOXETINE [Concomitant]
     Active Substance: FLUOXETINE HYDROCHLORIDE
  5. ENALAPRIL [Concomitant]
     Active Substance: ENALAPRIL
  6. SYNTHROID [Concomitant]
     Active Substance: LEVOTHYROXINE SODIUM
  7. ASPIRIN                            /00002701/ [Concomitant]
     Active Substance: ASPIRIN
  8. HYDROCODONE [Concomitant]
     Active Substance: HYDROCODONE
  9. PLAVIX [Concomitant]
     Active Substance: CLOPIDOGREL BISULFATE
  10. METFORMIN [Concomitant]
     Active Substance: METFORMIN HYDROCHLORIDE
  11. AMARYL [Concomitant]
     Active Substance: GLIMEPIRIDE
  12. MULTIVITAMINS [Concomitant]
     Active Substance: VITAMINS
  13. HYDROCHLOROTHIAZIDE. [Concomitant]
     Active Substance: HYDROCHLOROTHIAZIDE
  14. CYCLOBENZAPRINE [Concomitant]
     Active Substance: CYCLOBENZAPRINE
  15. AMBRISENTAN [Suspect]
     Active Substance: AMBRISENTAN
     Indication: PULMONARY HYPERTENSION
     Dosage: 10 MG, QD
     Route: 065
     Dates: start: 20150225
  16. PREDNISONE. [Concomitant]
     Active Substance: PREDNISONE
  17. TYLENOL WITH CODEINE [Concomitant]
     Active Substance: ACETAMINOPHEN\CODEINE PHOSPHATE
  18. AMLODIPINE [Concomitant]
     Active Substance: AMLODIPINE BESYLATE
  19. COREG [Concomitant]
     Active Substance: CARVEDILOL
  20. SIMVASTATIN. [Concomitant]
     Active Substance: SIMVASTATIN
  21. ADCIRCA [Suspect]
     Active Substance: TADALAFIL
     Dosage: 1 DF, QD
     Route: 065
  22. ALLOPURINOL. [Concomitant]
     Active Substance: ALLOPURINOL
  23. HUMALOG [Concomitant]
     Active Substance: INSULIN LISPRO

REACTIONS (6)
  - Visual impairment [Not Recovered/Not Resolved]
  - Peripheral swelling [Recovered/Resolved]
  - Swelling face [Unknown]
  - Dysphonia [Unknown]
  - Dyspnoea [Unknown]
  - Back pain [Not Recovered/Not Resolved]

NARRATIVE: CASE EVENT DATE: 20150225
